FAERS Safety Report 7425571-2 (Version None)
Quarter: 2011Q2

REPORT INFORMATION
  Report Type: 
  Country: None (occurrence: None)
  Receive Date: 20110420
  Receipt Date: 20110411
  Transmission Date: 20111010
  Serious: Yes (Hospitalization)
  Sender: FDA-Public Use
  Company Number: FR-ASTRAZENECA-2011SE21062

PATIENT
  Age: 77 Year
  Sex: Female

DRUGS (9)
  1. FORTZAAR [Suspect]
     Dosage: 100 MG/12.5 MG, DAILY
     Route: 048
     Dates: end: 20110210
  2. CORTANCYL [Suspect]
     Route: 048
     Dates: end: 20100210
  3. KARDEGIC [Suspect]
     Route: 048
     Dates: end: 20100210
  4. METOJECT [Suspect]
     Indication: SICCA SYNDROME
     Route: 058
     Dates: start: 20110119
  5. STILNOX [Suspect]
     Route: 048
     Dates: end: 20110210
  6. CRESTOR [Suspect]
     Indication: HYPERCHOLESTEROLAEMIA
     Route: 048
     Dates: end: 20110208
  7. ISOPTIN [Suspect]
     Route: 048
     Dates: end: 20110210
  8. PARIET [Suspect]
     Route: 048
     Dates: end: 20110210
  9. SPECIAFOLDINE [Concomitant]

REACTIONS (1)
  - INTERSTITIAL LUNG DISEASE [None]
